FAERS Safety Report 4780609-6 (Version None)
Quarter: 2005Q3

REPORT INFORMATION
  Report Type: 
  Country: None (occurrence: None)
  Receive Date: 20050926
  Receipt Date: 20050914
  Transmission Date: 20060218
  Serious: Yes (Hospitalization, Disabling, Other)
  Sender: FDA-Public Use
  Company Number: 2005129371

PATIENT
  Age: 46 Year
  Sex: Male
  Weight: 122.4712 kg

DRUGS (6)
  1. NEURONTIN [Suspect]
     Indication: DIABETIC NEUROPATHY
     Dosage: 2400 MG (800 MG, 3 IN 1 D), ORAL
     Route: 048
     Dates: start: 20010101
  2. LIDODERN  PATCH (LIDOCAINE HYDROCHLORIDE) [Concomitant]
  3. POTASSIUM (POTASSIUM) [Concomitant]
  4. ATENOLOL [Concomitant]
  5. ACTOS [Concomitant]
  6. THROAT PREPARATIONS (THROAT PREPARATIONS) [Concomitant]

REACTIONS (7)
  - CHEST PAIN [None]
  - ECONOMIC PROBLEM [None]
  - HAEMOPTYSIS [None]
  - LUNG DISORDER [None]
  - SLEEP APNOEA SYNDROME [None]
  - TREATMENT NONCOMPLIANCE [None]
  - WEIGHT INCREASED [None]
